FAERS Safety Report 20458941 (Version 1)
Quarter: 2022Q1

REPORT INFORMATION
  Report Type: Spontaneous
  Country: US (occurrence: US)
  Receive Date: 20220211
  Receipt Date: 20220211
  Transmission Date: 20220423
  Serious: No
  Sender: FDA-Public Use
  Company Number: US-BIOGEN-2022BI01094726

PATIENT
  Sex: Female

DRUGS (1)
  1. PLEGRIDY [Suspect]
     Active Substance: PEGINTERFERON BETA-1A
     Indication: Product used for unknown indication
     Route: 058
     Dates: start: 2021

REACTIONS (1)
  - Dehydration [Unknown]

NARRATIVE: CASE EVENT DATE: 20210101
